FAERS Safety Report 17222953 (Version 1)
Quarter: 2020Q1

REPORT INFORMATION
  Report Type: Report from Study
  Country: GB (occurrence: GB)
  Receive Date: 20200102
  Receipt Date: 20200102
  Transmission Date: 20200409
  Serious: Yes (Other)
  Sender: FDA-Public Use
  Company Number: GB-ROCHE-2506326

PATIENT

DRUGS (6)
  1. MORPHINE [Concomitant]
     Active Substance: MORPHINE
     Route: 065
  2. NITROUS OXIDE. [Concomitant]
     Active Substance: NITROUS OXIDE
     Indication: GENERAL ANAESTHESIA
  3. HYOSCINE [Concomitant]
     Active Substance: SCOPOLAMINE
     Route: 065
  4. DIAZEPAM. [Suspect]
     Active Substance: DIAZEPAM
     Indication: MUSCLE RELAXANT THERAPY
     Dosage: DOSE: 2.5-10 MG
     Route: 042
  5. HALOTHANE. [Concomitant]
     Active Substance: HALOTHANE
     Indication: GENERAL ANAESTHESIA
  6. PAPAVERETUM [Concomitant]
     Route: 065

REACTIONS (2)
  - Apnoea [Unknown]
  - Respiratory depression [Unknown]
